FAERS Safety Report 10411713 (Version 1)
Quarter: 2014Q2

REPORT INFORMATION
  Report Type: Spontaneous
  Country: US (occurrence: None)
  Receive Date: 20140604
  Receipt Date: 20140604
  Transmission Date: 20141212
  Serious: Yes (Hospitalization)
  Sender: FDA-Public Use
  Company Number: 163-POMAL-14042670

PATIENT
  Age: 63 Year
  Sex: Female

DRUGS (7)
  1. POMALYST (POMALIDOMIDE) (2 MILLIGRAM, CAPSULES) [Suspect]
     Indication: LYMPHOMA
     Route: 048
     Dates: start: 201311
  2. ASA (ACETYLSALICYLIC ACID) [Concomitant]
  3. LEXAPRO (ESCITALOPRAM OXALATE) [Concomitant]
  4. DAPSONE [Concomitant]
  5. NYSTATIN [Concomitant]
  6. POLYMIXIN B TRIMETHOPRIM (POLYTRIM) [Concomitant]
  7. PREDNISOLONE AC (PREDNISOLONE) [Concomitant]

REACTIONS (1)
  - Full blood count decreased [None]
